FAERS Safety Report 14160587 (Version 2)
Quarter: 2018Q3

REPORT INFORMATION
  Report Type: Spontaneous
  Country: US (occurrence: US)
  Receive Date: 20171104
  Receipt Date: 20180912
  Transmission Date: 20181010
  Serious: No
  Sender: FDA-Public Use
  Company Number: US-SHIRE-US201727126

PATIENT
  Sex: Female

DRUGS (1)
  1. GATTEX [Suspect]
     Active Substance: TEDUGLUTIDE\WATER
     Indication: SHORT-BOWEL SYNDROME
     Dosage: UNK
     Route: 058
     Dates: start: 20140117, end: 20180106

REACTIONS (3)
  - Drug effect decreased [Unknown]
  - Injection site rash [Not Recovered/Not Resolved]
  - Injection site erythema [Recovered/Resolved]
